FAERS Safety Report 9481019 (Version 1)
Quarter: 2013Q3

REPORT INFORMATION
  Report Type: Spontaneous
  Country: US (occurrence: US)
  Receive Date: 20130828
  Receipt Date: 20130828
  Transmission Date: 20140515
  Serious: No
  Sender: FDA-Public Use
  Company Number: US-B.I. PHARMACEUTICALS,INC./RIDGEFIELD-2013-BI-25754BP

PATIENT
  Age: 45 Year
  Sex: Female
  Weight: 133 kg

DRUGS (10)
  1. COMBIVENT [Suspect]
     Indication: ASTHMA
     Dosage: STRENGTH: 20 MCG / 100MCG; DAILY DOSE:160 MCG / 800 MCG
     Route: 055
     Dates: start: 201306
  2. METFORMIN [Concomitant]
     Indication: DIABETES MELLITUS
     Dosage: 2000 MG
     Route: 048
  3. LASIX [Concomitant]
     Indication: HYPERTENSION
     Dosage: 40 MG
     Route: 048
  4. SINGULAIR [Concomitant]
     Indication: PRODUCT USED FOR UNKNOWN INDICATION
     Dosage: 10 MG
     Route: 048
  5. TRUVADA [Concomitant]
     Indication: HIV TEST
     Dosage: 1 MG
     Route: 048
  6. ISENTRESS [Concomitant]
     Indication: HIV TEST
     Dosage: 2400 MG
     Route: 048
  7. TRAVATAN EYE DROPS [Concomitant]
     Indication: GLAUCOMA
     Dosage: STRENGTH: 1 DROP EACH EYES; DAILY DOSE: 1 DROP EACH EYE
  8. WELBUTRIN [Concomitant]
     Indication: DEPRESSION
     Dosage: 300 MG
  9. LYRICA [Concomitant]
     Indication: DEPRESSION
     Dosage: 75 MG
     Route: 048
  10. ALBUTEROL NEB TX [Concomitant]
     Indication: PRODUCT USED FOR UNKNOWN INDICATION

REACTIONS (3)
  - Drug ineffective [Not Recovered/Not Resolved]
  - Overdose [Not Recovered/Not Resolved]
  - Off label use [Not Recovered/Not Resolved]
